FAERS Safety Report 25155357 (Version 1)
Quarter: 2025Q2

REPORT INFORMATION
  Report Type: Spontaneous
  Country: IT (occurrence: IT)
  Receive Date: 20250403
  Receipt Date: 20250403
  Transmission Date: 20250716
  Serious: Yes (Hospitalization, Other)
  Sender: PFIZER
  Company Number: None

PATIENT
  Age: 67 Year
  Sex: Male
  Weight: 51 kg

DRUGS (6)
  1. PANTOPRAZOLE [Suspect]
     Active Substance: PANTOPRAZOLE
     Indication: Gastritis
     Dosage: 40 MG, 1X/DAY (40 MILLIGRAM, QD)
     Route: 042
     Dates: start: 20241021, end: 20241028
  2. ASPIRIN [Concomitant]
     Active Substance: ASPIRIN
     Indication: Infarction
     Route: 048
     Dates: start: 20240929
  3. BISOPROLOL FUMARATE [Concomitant]
     Active Substance: BISOPROLOL FUMARATE
     Dosage: 2.5 MG, 1X/DAY (2.5 MILLIGRAM, QD)
     Dates: start: 20240928
  4. FUROSEMIDE [Concomitant]
     Active Substance: FUROSEMIDE
     Indication: Infarction
     Dosage: 25 MG, 1X/DAY (25 MILLIGRAM, QD)
     Route: 048
     Dates: start: 20240928
  5. RAMIPRIL [Concomitant]
     Active Substance: RAMIPRIL
     Indication: Infarction
     Dosage: 2.5 MG, 1X/DAY (2.5 MILLIGRAM, QD)
     Route: 048
     Dates: start: 20240928
  6. CLOPIDOGREL [Concomitant]
     Active Substance: CLOPIDOGREL BISULFATE

REACTIONS (2)
  - Acute kidney injury [Not Recovered/Not Resolved]
  - Off label use [Unknown]

NARRATIVE: CASE EVENT DATE: 20241021
